FAERS Safety Report 22192086 (Version 3)
Quarter: 2023Q4

REPORT INFORMATION
  Report Type: Report from Study
  Country: US (occurrence: US)
  Receive Date: 20230410
  Receipt Date: 20231206
  Transmission Date: 20240110
  Serious: Yes (Congenital Anomaly, Other)
  Sender: FDA-Public Use
  Company Number: US-GILEAD-2023-0623412

PATIENT
  Age: 0 Year
  Sex: Female
  Weight: 3.49 kg

DRUGS (1)
  1. BICTEGRAVIR\EMTRICITABINE\TENOFOVIR ALAFENAMIDE [Suspect]
     Active Substance: BICTEGRAVIR\EMTRICITABINE\TENOFOVIR ALAFENAMIDE
     Indication: HIV infection
     Dosage: 1 DOSAGE FORM, QD
     Route: 064

REACTIONS (5)
  - Trisomy 21 [Not Recovered/Not Resolved]
  - Craniofacial deformity [Not Recovered/Not Resolved]
  - Ventricular hypertrophy [Not Recovered/Not Resolved]
  - Ultrasound antenatal screen abnormal [Not Recovered/Not Resolved]
  - Foetal exposure during pregnancy [Recovered/Resolved]

NARRATIVE: CASE EVENT DATE: 20220830
